FAERS Safety Report 15877211 (Version 2)
Quarter: 2021Q1

REPORT INFORMATION
  Report Type: Report from Study
  Country: US (occurrence: US)
  Receive Date: 20190128
  Receipt Date: 20210119
  Transmission Date: 20210419
  Serious: No
  Sender: FDA-Public Use
  Company Number: US-SA-2019SA017916

PATIENT
  Age: 26 Year
  Sex: Male

DRUGS (2)
  1. DUPILUMAB [Suspect]
     Active Substance: DUPILUMAB
     Dosage: 300 MG, QOW
     Route: 058
     Dates: start: 20190110, end: 2019
  2. DUPILUMAB [Suspect]
     Active Substance: DUPILUMAB
     Indication: DERMATITIS ATOPIC
     Dosage: 600 MG, 1X
     Route: 058

REACTIONS (7)
  - Vision blurred [Unknown]
  - Eyelid skin dryness [Unknown]
  - Ocular hyperaemia [Unknown]
  - Injection site pain [Unknown]
  - Eyelids pruritus [Unknown]
  - Lacrimation increased [Unknown]
  - Eye discharge [Unknown]

NARRATIVE: CASE EVENT DATE: 201901
